FAERS Safety Report 8883196 (Version 2)
Quarter: 2012Q4

REPORT INFORMATION
  Report Type: Report from Study
  Country: FR (occurrence: FR)
  Receive Date: 20121102
  Receipt Date: 20121109
  Transmission Date: 20130627
  Serious: Yes (Other)
  Sender: FDA-Public Use
  Company Number: FR-ROCHE-1149523

PATIENT
  Age: 76 Year
  Sex: Male
  Weight: 82 kg

DRUGS (18)
  1. RITUXIMAB [Suspect]
     Indication: B-CELL LYMPHOMA
     Dosage: date of last dose : 17/Sep/2012
     Route: 058
     Dates: start: 20120319
  2. RITUXIMAB [Suspect]
     Dosage: Date of last dose : 17/Sep/2012
     Route: 058
     Dates: start: 20120416
  3. RITUXIMAB [Suspect]
     Route: 058
     Dates: start: 20120723
  4. RITUXIMAB [Suspect]
     Route: 058
     Dates: start: 20120514
  5. RITUXIMAB [Suspect]
     Route: 058
     Dates: start: 20120820
  6. RITUXIMAB [Suspect]
     Route: 058
     Dates: start: 20120917
  7. RITUXIMAB [Suspect]
     Route: 058
     Dates: start: 20120625
  8. RITUXIMAB [Suspect]
     Indication: B-CELL LYMPHOMA
     Route: 042
     Dates: start: 20120220
  9. COTRIMOXAZOLE [Concomitant]
     Route: 065
     Dates: start: 20120213
  10. VALACICLOVIR [Concomitant]
     Route: 065
     Dates: start: 20120213
  11. PENICILLINE [Concomitant]
     Dosage: 2 MUI
     Route: 065
     Dates: start: 20120213
  12. DARBEPOETIN ALFA [Concomitant]
     Indication: ANAEMIA
     Route: 065
     Dates: start: 20120213, end: 20120416
  13. METHYLPREDNISOLONE [Concomitant]
     Route: 065
     Dates: start: 20120220, end: 20120220
  14. METHYLPREDNISOLONE [Concomitant]
     Route: 065
     Dates: start: 20120416, end: 20120416
  15. PARACETAMOL [Concomitant]
     Indication: PELVIC PAIN
     Route: 065
     Dates: start: 20120319, end: 20120319
  16. FOLINATE DE CALCIUM [Concomitant]
     Indication: ANAEMIA
     Route: 065
  17. CORTANCYL [Concomitant]
     Indication: ARTHRALGIA
     Route: 065
     Dates: start: 20120329, end: 20120329
  18. IXPRIM [Concomitant]
     Indication: ARTHRALGIA
     Route: 065
     Dates: start: 20120625

REACTIONS (1)
  - Injection site reaction [Recovered/Resolved]
